FAERS Safety Report 21395126 (Version 1)
Quarter: 2022Q3

REPORT INFORMATION
  Report Type: Report from Study
  Country: US (occurrence: US)
  Receive Date: 20220930
  Receipt Date: 20220930
  Transmission Date: 20221026
  Serious: Yes (Hospitalization)
  Sender: FDA-Public Use
  Company Number: US-TAKEDA-US201840102

PATIENT
  Age: 46 Year
  Sex: Female

DRUGS (8)
  1. LANADELUMAB [Suspect]
     Active Substance: LANADELUMAB
     Indication: Immune system disorder
     Dosage: 600 MILLIGRAM, Q2WEEKS
     Route: 058
     Dates: start: 20151124
  2. LANADELUMAB [Suspect]
     Active Substance: LANADELUMAB
     Dosage: 300 MILLIGRAM, Q2WEEKS
     Route: 058
     Dates: start: 20181016
  3. LANADELUMAB [Suspect]
     Active Substance: LANADELUMAB
     Dosage: 300 MILLIGRAM, Q2WEEKS
     Route: 058
     Dates: start: 20200923
  4. LANADELUMAB [Suspect]
     Active Substance: LANADELUMAB
     Dosage: 300 MILLIGRAM, Q2WEEKS
     Route: 058
     Dates: start: 20200924
  5. LANADELUMAB [Suspect]
     Active Substance: LANADELUMAB
     Dosage: 300 MILLIGRAM, Q2WEEKS
     Route: 058
     Dates: start: 202102
  6. LANADELUMAB [Suspect]
     Active Substance: LANADELUMAB
     Dosage: 2 MILLILITER, Q2WEEKS
     Route: 058
     Dates: start: 202009
  7. LANADELUMAB [Suspect]
     Active Substance: LANADELUMAB
     Dosage: UNK, Q3WEEKS
     Route: 065
  8. ICATIBANT [Concomitant]
     Active Substance: ICATIBANT ACETATE
     Dosage: UNK
     Route: 065

REACTIONS (5)
  - Breast conserving surgery [Unknown]
  - Injection site pain [Recovered/Resolved]
  - Hereditary angioedema [Recovered/Resolved]
  - Weight decreased [Unknown]
  - Inappropriate schedule of product administration [Unknown]

NARRATIVE: CASE EVENT DATE: 20181016
